FAERS Safety Report 4518179-X (Version None)
Quarter: 2004Q4

REPORT INFORMATION
  Report Type: 
  Country: None (occurrence: None)
  Receive Date: 20041130
  Receipt Date: 20041111
  Transmission Date: 20050328
  Serious: Yes (Death)
  Sender: FDA-Public Use
  Company Number: USA040978500

PATIENT
  Age: 19 Year
  Sex: Female

DRUGS (1)
  1. SYMBYAX [Suspect]

REACTIONS (1)
  - COMPLETED SUICIDE [None]
